FAERS Safety Report 8683353 (Version 2)
Quarter: 2013Q1

REPORT INFORMATION
  Report Type: Spontaneous
  Country: BR (occurrence: None)
  Receive Date: 20120710
  Receipt Date: 20121207
  Transmission Date: 20140127
  Serious: Yes (Hospitalization)
  Sender: FDA-Public Use
  Company Number: DSJ-2012-11748

PATIENT
  Age: 64 Year
  Sex: Female

DRUGS (4)
  1. VILDAGLIPTIN/METFORMIN [Concomitant]
  2. LEVOTHYROXINE SODIUM (LEVOTHYROXINE SODIUM) (LEVOTHYROXINE SODIUM) [Concomitant]
  3. ESCITALOPRAM (ESCITALOPRAM) (ESCITALOPRAM) [Concomitant]
  4. BENICAR ANLO (OLMESARTAN MEDOXOMIL AND AMLODIPINE) [Suspect]
     Route: 048
     Dates: start: 201206

REACTIONS (2)
  - Joint arthroplasty [None]
  - Pain in extremity [None]
